FAERS Safety Report 9307046 (Version 2)
Quarter: 2013Q4

REPORT INFORMATION
  Report Type: Spontaneous
  Country: US (occurrence: US)
  Receive Date: 20130523
  Receipt Date: 20131114
  Transmission Date: 20140711
  Serious: Yes (Hospitalization)
  Sender: FDA-Public Use
  Company Number: US-B.I. PHARMACEUTICALS,INC./RIDGEFIELD-2013-BI-14271BP

PATIENT
  Sex: Male
  Weight: 90.72 kg

DRUGS (22)
  1. PRADAXA [Suspect]
     Indication: ANTICOAGULANT THERAPY
     Dosage: 300 MG
     Route: 048
     Dates: start: 20120727, end: 20120918
  2. ALBUTEROL [Concomitant]
     Dosage: 2 PUF
     Route: 055
  3. BUDESONIDE/FORMOTEROL [Concomitant]
     Dosage: 4 PUF
     Route: 055
  4. CARBOXYMETHYLCELLULOSE [Concomitant]
  5. DESONIDE [Concomitant]
  6. DOXYCYCLINE HYCLATE [Concomitant]
     Dosage: 200 MG
     Route: 048
  7. FINASTERIDE [Concomitant]
     Dosage: 5 MG
     Route: 048
  8. HYDROCORTISONE [Concomitant]
     Route: 054
  9. IPRATROPIUM BROMIDE [Concomitant]
     Dosage: 8 PUF
     Route: 055
  10. KETOCONAZOLE [Concomitant]
  11. NITROSTAT [Concomitant]
     Indication: CHEST PAIN
     Route: 060
  12. PRAVASTATIN [Concomitant]
     Indication: BLOOD CHOLESTEROL ABNORMAL
     Dosage: 80 MG
     Route: 048
  13. ALLOPURINOL [Concomitant]
     Dosage: 300 MG
     Route: 048
  14. ASPIRIN [Concomitant]
     Dosage: 325 MG
     Route: 048
  15. CALCIUM ACETATE [Concomitant]
     Dosage: 1334 MG
     Route: 048
  16. CINNAMON [Concomitant]
     Route: 048
  17. COENZYME Q10 [Concomitant]
     Route: 048
  18. DILTIAZEM [Concomitant]
     Dosage: 120 MG
     Route: 048
  19. HYDROCHLOROTHIAZIDE [Concomitant]
     Dosage: 25 MG
     Route: 048
  20. MAGNESIUM OXIDE [Concomitant]
     Dosage: 420 MG
     Route: 048
  21. TERAZOSIN HCL [Concomitant]
     Dosage: 1 MG
     Route: 048
  22. CHOLECALCIFEROL [Concomitant]

REACTIONS (2)
  - Lower gastrointestinal haemorrhage [Unknown]
  - Anaemia [Unknown]
